FAERS Safety Report 7916667-7 (Version None)
Quarter: 2011Q4

REPORT INFORMATION
  Report Type: 
  Country: None (occurrence: None)
  Receive Date: 20111116
  Receipt Date: 20111104
  Transmission Date: 20120403
  Serious: Yes (Hospitalization)
  Sender: FDA-Public Use
  Company Number: US-BAYER-201033436NA

PATIENT
  Age: 38 Year
  Sex: Female

DRUGS (1)
  1. YAZ [Suspect]
     Dosage: UNK
     Dates: start: 20080701, end: 20081001

REACTIONS (4)
  - PULMONARY EMBOLISM [None]
  - STRESS [None]
  - ANXIETY [None]
  - DEPRESSION [None]
